FAERS Safety Report 16526255 (Version 1)
Quarter: 2019Q3

REPORT INFORMATION
  Report Type: Spontaneous
  Country: JP (occurrence: JP)
  Receive Date: 20190703
  Receipt Date: 20190703
  Transmission Date: 20191004
  Serious: Yes (Death, Other)
  Sender: FDA-Public Use
  Company Number: JP-ASTELLAS-2019JP013267

PATIENT
  Age: 45 Year
  Sex: Male

DRUGS (18)
  1. METHOTREXATE. [Concomitant]
     Active Substance: METHOTREXATE
     Route: 028
  2. ETOPOSIDE. [Concomitant]
     Active Substance: ETOPOSIDE
     Indication: NATURAL KILLER-CELL LEUKAEMIA
     Dosage: UNK UNK, UNKNOWN FREQ.
     Route: 065
  3. DEXAMETHASONE. [Concomitant]
     Active Substance: DEXAMETHASONE
     Indication: NATURAL KILLER-CELL LEUKAEMIA
     Dosage: UNK UNK, UNKNOWN FREQ.
     Route: 065
  4. PREDNISOLONE. [Concomitant]
     Active Substance: PREDNISOLONE
     Route: 028
  5. CICLOSPORIN [Concomitant]
     Active Substance: CYCLOSPORINE
     Indication: NATURAL KILLER-CELL LEUKAEMIA
     Dosage: UNK UNK, UNKNOWN FREQ.
  6. METHOTREXATE. [Concomitant]
     Active Substance: METHOTREXATE
     Route: 028
  7. CYCLOPHOSPHAMIDE. [Concomitant]
     Active Substance: CYCLOPHOSPHAMIDE
     Indication: NATURAL KILLER-CELL LEUKAEMIA
     Route: 065
  8. DOXORUBICIN HYDROCHLORIDE. [Concomitant]
     Active Substance: DOXORUBICIN HYDROCHLORIDE
     Indication: NATURAL KILLER-CELL LEUKAEMIA
     Route: 065
  9. VINCRISTINE SULFATE. [Concomitant]
     Active Substance: VINCRISTINE SULFATE
     Indication: NATURAL KILLER-CELL LEUKAEMIA
     Dosage: 0.7 MG/M2, UNKNOWN FREQ.
     Route: 065
  10. FLUDARABINE PHOSPHATE. [Concomitant]
     Active Substance: FLUDARABINE PHOSPHATE
     Indication: BONE MARROW CONDITIONING REGIMEN
     Route: 065
  11. PROGRAF [Suspect]
     Active Substance: TACROLIMUS\TACROLIMUS ANHYDROUS
     Indication: PROPHYLAXIS AGAINST GRAFT VERSUS HOST DISEASE
     Dosage: UNK UNK, UNKNOWN FREQ.
     Route: 065
  12. METHOTREXATE. [Concomitant]
     Active Substance: METHOTREXATE
     Indication: NATURAL KILLER-CELL LEUKAEMIA
     Dosage: UNK UNK, UNKNOWN FREQ.
     Route: 028
  13. METHOTREXATE. [Concomitant]
     Active Substance: METHOTREXATE
     Route: 028
  14. MELPHALAN. [Concomitant]
     Active Substance: MELPHALAN
     Indication: BONE MARROW CONDITIONING REGIMEN
  15. ETOPOSIDE. [Concomitant]
     Active Substance: ETOPOSIDE
     Route: 065
  16. PREDNISOLONE. [Concomitant]
     Active Substance: PREDNISOLONE
     Indication: NATURAL KILLER-CELL LEUKAEMIA
     Dosage: UNK UNK, UNKNOWN FREQ.
     Route: 028
  17. PREDNISOLONE. [Concomitant]
     Active Substance: PREDNISOLONE
     Route: 028
  18. CYTARABINE. [Concomitant]
     Active Substance: CYTARABINE
     Indication: NATURAL KILLER-CELL LEUKAEMIA
     Route: 028

REACTIONS (2)
  - Multiple organ dysfunction syndrome [Fatal]
  - Hepatorenal failure [Unknown]
